FAERS Safety Report 12176980 (Version 1)
Quarter: 2016Q1

REPORT INFORMATION
  Report Type: Spontaneous
  Country: US (occurrence: US)
  Receive Date: 20160314
  Receipt Date: 20160314
  Transmission Date: 20160526
  Serious: Yes (Death, Other)
  Sender: FDA-Public Use
  Company Number: US-TEVA-642242USA

PATIENT
  Age: 76 Year
  Sex: Female

DRUGS (5)
  1. ETANERCEPT [Suspect]
     Active Substance: ETANERCEPT
     Indication: RHEUMATOID ARTHRITIS
     Route: 065
  2. DEXAMETHASONE. [Concomitant]
     Active Substance: DEXAMETHASONE
     Route: 065
  3. GABAPENTIN. [Concomitant]
     Active Substance: GABAPENTIN
     Route: 065
  4. METHOTREXATE [Suspect]
     Active Substance: METHOTREXATE
     Indication: RHEUMATOID ARTHRITIS
     Route: 065
  5. PREDNISONE. [Suspect]
     Active Substance: PREDNISONE
     Dosage: 1MG/KG
     Route: 048

REACTIONS (2)
  - Carotid aneurysm rupture [Fatal]
  - Infective aneurysm [Fatal]
